FAERS Safety Report 12906872 (Version 1)
Quarter: 2016Q4

REPORT INFORMATION
  Report Type: Spontaneous
  Country: US (occurrence: US)
  Receive Date: 20161101
  Receipt Date: 20161101
  Transmission Date: 20170207
  Serious: Yes (Disabling)
  Sender: FDA-Public Use
  Company Number: None

PATIENT
  Age: 46 Year
  Sex: Female
  Weight: 90 kg

DRUGS (3)
  1. TRAVATAN Z [Suspect]
     Active Substance: TRAVOPROST
     Indication: GLAUCOMA
     Dosage: ?          QUANTITY:1 DROP(S);?
     Route: 047
     Dates: start: 20160729, end: 20160921
  2. LUETIN [Concomitant]
  3. FISH OIL [Concomitant]
     Active Substance: FISH OIL

REACTIONS (19)
  - Hyperacusis [None]
  - Economic problem [None]
  - Dry eye [None]
  - Fatigue [None]
  - Pollakiuria [None]
  - Neck pain [None]
  - Depression [None]
  - Anxiety [None]
  - Urinary tract infection [None]
  - Insurance issue [None]
  - Pain [None]
  - Impaired work ability [None]
  - Insomnia [None]
  - Photophobia [None]
  - Ocular hyperaemia [None]
  - Eye pain [None]
  - Irritability [None]
  - Back pain [None]
  - Sweat gland disorder [None]

NARRATIVE: CASE EVENT DATE: 20160729
